FAERS Safety Report 4502043-6 (Version None)
Quarter: 2004Q4

REPORT INFORMATION
  Report Type: 
  Country: None (occurrence: None)
  Receive Date: 20041115
  Receipt Date: 20041115
  Transmission Date: 20050328
  Serious: Yes (Other)
  Sender: FDA-Public Use
  Company Number: None

PATIENT
  Age: 80 Year
  Sex: Female
  Weight: 57 kg

DRUGS (1)
  1. AZTREONAM 1 GRAMS BRISTOL MYERS SQUIBB [Suspect]
     Indication: STAPHYLOCOCCAL INFECTION
     Dosage: 1 GRAMS Q8HOURS INTRAVENOU
     Route: 042
     Dates: start: 20041012, end: 20041103

REACTIONS (3)
  - ADVERSE DRUG REACTION [None]
  - BODY TEMPERATURE INCREASED [None]
  - RASH [None]
